FAERS Safety Report 5370955-X (Version None)
Quarter: 2007Q2

REPORT INFORMATION
  Report Type: 
  Country: None (occurrence: None)
  Receive Date: 20070626
  Receipt Date: 20070614
  Transmission Date: 20071010
  Serious: Yes (Other)
  Sender: FDA-Public Use
  Company Number: US-PFIZER INC-2007035106

PATIENT
  Sex: Male
  Weight: 90.7 kg

DRUGS (6)
  1. NARDIL [Suspect]
     Indication: DEPRESSION
     Dates: start: 20070420, end: 20070422
  2. NARDIL [Suspect]
     Indication: PANIC REACTION
  3. NARDIL [Suspect]
     Indication: ANXIETY
  4. NARDIL [Suspect]
     Dates: start: 20070502, end: 20070606
  5. NARDIL [Suspect]
  6. XANAX - SLOW RELEASE [Concomitant]

REACTIONS (2)
  - DEPRESSION [None]
  - PANIC ATTACK [None]
